FAERS Safety Report 23831061 (Version 3)
Quarter: 2024Q2

REPORT INFORMATION
  Report Type: Spontaneous
  Country: HU (occurrence: HU)
  Receive Date: 20240508
  Receipt Date: 20240611
  Transmission Date: 20240716
  Serious: Yes (Hospitalization)
  Sender: FDA-Public Use
  Company Number: HU-ELI_LILLY_AND_COMPANY-HU202404013172

PATIENT
  Age: 63 Year
  Sex: Female

DRUGS (9)
  1. METHYLPREDNISOLONE [Suspect]
     Active Substance: METHYLPREDNISOLONE
     Dosage: 16 MG
     Route: 065
  2. METHYLPREDNISOLONE [Suspect]
     Active Substance: METHYLPREDNISOLONE
     Dosage: 4 MG
     Route: 065
  3. OLUMIANT [Suspect]
     Active Substance: BARICITINIB
     Indication: Rheumatoid arthritis
     Dosage: 4 MG, 1X/DAY
     Route: 048
     Dates: start: 20211001
  4. OLUMIANT [Suspect]
     Active Substance: BARICITINIB
     Indication: Psoriatic arthropathy
     Dosage: 2 MG, 1X/DAY
     Route: 048
     Dates: start: 20220128
  5. OLUMIANT [Suspect]
     Active Substance: BARICITINIB
     Dosage: 2 MG, 1X/DAY
     Route: 048
     Dates: start: 20220520
  6. OLUMIANT [Suspect]
     Active Substance: BARICITINIB
     Dosage: 2 MG, 1X/DAY
     Route: 048
     Dates: start: 20220812
  7. OLUMIANT [Suspect]
     Active Substance: BARICITINIB
     Dosage: 2 MG, 1X/DAY
     Route: 048
     Dates: start: 20230210
  8. LEFLUNOMIDE [Suspect]
     Active Substance: LEFLUNOMIDE
     Dosage: 20 MG
     Route: 065
  9. DENOSUMAB [Concomitant]
     Active Substance: DENOSUMAB
     Dosage: UNK

REACTIONS (8)
  - Diverticulitis [Recovered/Resolved]
  - Spinal compression fracture [Recovered/Resolved]
  - COVID-19 pneumonia [Recovered/Resolved]
  - Gastritis [Recovered/Resolved]
  - Duodenitis [Recovered/Resolved]
  - Renal impairment [Recovering/Resolving]
  - Osteoporosis [Recovering/Resolving]
  - Anaemia [Unknown]

NARRATIVE: CASE EVENT DATE: 20220309
